FAERS Safety Report 26122260 (Version 1)
Quarter: 2025Q4

REPORT INFORMATION
  Report Type: Spontaneous
  Country: CN (occurrence: CN)
  Receive Date: 20251204
  Receipt Date: 20251204
  Transmission Date: 20260117
  Serious: Yes (Other)
  Sender: PFIZER
  Company Number: CN-PFIZER INC-PV202500125922

PATIENT
  Age: 63 Year
  Sex: Male

DRUGS (2)
  1. XYNTHA [Suspect]
     Active Substance: MOROCTOCOG ALFA
     Indication: Factor VIII deficiency
     Dosage: 2000 IU, ONCE EVERY 12 HOURS
     Route: 058
  2. XYNTHA [Suspect]
     Active Substance: MOROCTOCOG ALFA
     Dosage: 3000IU EACH TIME
     Route: 042

REACTIONS (3)
  - Haemarthrosis [Unknown]
  - Cataract [Unknown]
  - Off label use [Unknown]
